FAERS Safety Report 7937840-8 (Version None)
Quarter: 2011Q4

REPORT INFORMATION
  Report Type: 
  Country: None (occurrence: None)
  Receive Date: 20111123
  Receipt Date: 20111116
  Transmission Date: 20120403
  Serious: Yes (Other)
  Sender: FDA-Public Use
  Company Number: JP-MERCK-1106USA02698

PATIENT
  Age: 76 Year
  Sex: Male

DRUGS (14)
  1. SINEMET [Suspect]
     Dosage: DIVIDED DOSE FREQUENCY U
     Route: 048
     Dates: start: 20040201
  2. SINEMET [Suspect]
     Dosage: DIVIDED DOSE FREQUENCY U
     Route: 048
     Dates: start: 20040101, end: 20050101
  3. SINEMET [Suspect]
     Dosage: DIVIDED DOSE FREQUENCY U
     Route: 048
     Dates: start: 19970101, end: 19980601
  4. CABERGOLINE [Concomitant]
     Indication: PARKINSON'S DISEASE
     Dosage: DIVIDED DOSE FRECUENCY U
     Route: 048
     Dates: start: 20021001, end: 20040201
  5. PERGOLIDE MESYLATE [Suspect]
     Dosage: DIVIDED DOSE FRECUENCY U
     Route: 048
     Dates: start: 19980701, end: 19980801
  6. AMANTADINE HYDROCHLORIDE [Concomitant]
     Indication: PARKINSON'S DISEASE
     Dosage: DIVIDED DOSE FREQUENCY U
     Route: 048
     Dates: start: 19980801
  7. SINEMET [Suspect]
     Dosage: DIVIDED DOSE FREQUENCY U
     Route: 048
     Dates: start: 19980801, end: 19980801
  8. PERGOLIDE MESYLATE [Suspect]
     Indication: PARKINSON'S DISEASE
     Dosage: DIVIDED DOSE FRECUENCY U
     Route: 048
     Dates: start: 19980601, end: 19980701
  9. SINEMET [Suspect]
     Dosage: DIVIDED DOSE FREQUENCY U
     Route: 048
     Dates: start: 20050101
  10. TREMIN [Suspect]
     Indication: PARKINSON'S DISEASE
     Dosage: DIVIDED DOSE FRECUANCY U
     Route: 048
     Dates: start: 19980801, end: 19980801
  11. BROMOCRIPTINE MESYLATE [Concomitant]
     Indication: PARKINSON'S DISEASE
     Dosage: DIVIDED DOSE FRECUENCY U
     Route: 048
     Dates: start: 19990901
  12. SINEMET [Suspect]
     Indication: PARKINSON'S DISEASE
     Dosage: DIVIDED DOSE FREQUENCY U
     Route: 048
     Dates: start: 19980701, end: 19980801
  13. SINEMET [Suspect]
     Dosage: DIVIDED DOSE FREQUENCY U
     Route: 048
     Dates: start: 19980601, end: 19980701
  14. CABERGOLINE [Concomitant]
     Dosage: DIVIDED DOSE FRECUENCY U
     Route: 048
     Dates: start: 20040201, end: 20051001

REACTIONS (4)
  - ABNORMAL BEHAVIOUR [None]
  - HALLUCINATION [None]
  - DELUSION [None]
  - PERSECUTORY DELUSION [None]
